FAERS Safety Report 9324713 (Version 8)
Quarter: 2014Q3

REPORT INFORMATION
  Report Type: Spontaneous
  Country: US (occurrence: US)
  Receive Date: 20130603
  Receipt Date: 20140729
  Transmission Date: 20150326
  Serious: Yes (Life-Threatening, Hospitalization, Other)
  Sender: FDA-Public Use
  Company Number: US-009507513-1305USA018027

PATIENT
  Sex: Female
  Weight: 66.67 kg

DRUGS (1)
  1. NUVARING [Suspect]
     Active Substance: ETHINYL ESTRADIOL\ETONOGESTREL
     Indication: CONTRACEPTION
     Dosage: 1 DF, QM
     Route: 067
     Dates: start: 200605, end: 20090729

REACTIONS (19)
  - Deep vein thrombosis [Not Recovered/Not Resolved]
  - Systemic lupus erythematosus rash [Unknown]
  - Cardiac murmur [Unknown]
  - Polycythaemia [Recovered/Resolved]
  - Maternal exposure before pregnancy [Unknown]
  - Pelvic adhesions [Unknown]
  - Anxiety [Unknown]
  - Vena cava filter insertion [Unknown]
  - Nasal congestion [Unknown]
  - Pulmonary embolism [Recovered/Resolved]
  - Ear disorder [Unknown]
  - Cough [Unknown]
  - Ectopic pregnancy [Recovered/Resolved]
  - Insomnia [Unknown]
  - Surgery [Unknown]
  - Pneumonia [Recovered/Resolved]
  - Treatment noncompliance [Unknown]
  - Salpingo-oophorectomy unilateral [Unknown]
  - Pulmonary hypertension [Recovered/Resolved]

NARRATIVE: CASE EVENT DATE: 20081017
